FAERS Safety Report 8491754-6 (Version None)
Quarter: 2012Q3

REPORT INFORMATION
  Report Type: 
  Country: None (occurrence: None)
  Receive Date: 20120706
  Receipt Date: 20120624
  Transmission Date: 20120928
  Serious: Yes (Other)
  Sender: FDA-Public Use
  Company Number: JP-BRISTOL-MYERS SQUIBB COMPANY-16708604

PATIENT
  Age: 67 Year
  Sex: Male

DRUGS (4)
  1. VINBLASTINE SULFATE [Suspect]
     Indication: HODGKIN'S DISEASE
  2. BLEOMYCIN SULFATE [Suspect]
     Indication: HODGKIN'S DISEASE
     Dosage: 168 MG-TOTAL DOSE
  3. DACARBAZINE [Suspect]
     Indication: HODGKIN'S DISEASE
  4. ADRIAMYCIN PFS [Suspect]
     Indication: HODGKIN'S DISEASE

REACTIONS (2)
  - SCLERODERMA [None]
  - INTERSTITIAL LUNG DISEASE [None]
